FAERS Safety Report 8504906-3 (Version None)
Quarter: 2012Q3

REPORT INFORMATION
  Report Type: 
  Country: None (occurrence: None)
  Receive Date: 20120712
  Receipt Date: 20120710
  Transmission Date: 20120928
  Serious: Yes (Life-Threatening, Hospitalization)
  Sender: FDA-Public Use
  Company Number: PHHY2012NL057306

PATIENT
  Sex: Male

DRUGS (4)
  1. ZOMETA [Suspect]
     Dosage: 4 MG/100 ML SOLUTION FOR IV INFUSION 1X PER 21 DAYS
     Route: 042
     Dates: start: 20120104
  2. ZOMETA [Suspect]
     Dosage: 4 MG/100 ML SOLUTION FOR IV INFUSION 1X PER 21 DAYS
     Route: 042
     Dates: start: 20120508
  3. ZOMETA [Suspect]
     Indication: METASTASES TO BONE
     Dosage: 4 MG/100 ML SOLUTION FOR IV INFUSION 1X PER 21 DAYS
     Route: 042
  4. ZOMETA [Suspect]
     Dosage: 4 MG/100 ML SOLUTION FOR IV INFUSION 1X PER 21 DAYS
     Route: 042
     Dates: start: 20120328

REACTIONS (2)
  - PNEUMONIA [None]
  - TERMINAL STATE [None]
